FAERS Safety Report 13479523 (Version 2)
Quarter: 2017Q3

REPORT INFORMATION
  Report Type: Report from Study
  Country: US (occurrence: US)
  Receive Date: 20170424
  Receipt Date: 20170728
  Transmission Date: 20171127
  Serious: No
  Sender: FDA-Public Use
  Company Number: US-AMGEN-USASL2017037041

PATIENT
  Age: 71 Year
  Sex: Female

DRUGS (1)
  1. REPATHA [Suspect]
     Active Substance: EVOLOCUMAB
     Indication: BLOOD CHOLESTEROL ABNORMAL
     Dosage: 420 MG, QMO
     Route: 058
     Dates: start: 20170112

REACTIONS (7)
  - Anxiety [Unknown]
  - Confusional state [Unknown]
  - Influenza like illness [Unknown]
  - Swelling [Unknown]
  - Nasopharyngitis [Unknown]
  - Insomnia [Unknown]
  - Cough [Unknown]

NARRATIVE: CASE EVENT DATE: 201702
